FAERS Safety Report 18096460 (Version 1)
Quarter: 2020Q3

REPORT INFORMATION
  Report Type: Spontaneous
  Country: CZ (occurrence: CZ)
  Receive Date: 20200730
  Receipt Date: 20200730
  Transmission Date: 20201103
  Serious: Yes (Other)
  Sender: FDA-Public Use
  Company Number: CZ-SA-2020SA192802

PATIENT

DRUGS (3)
  1. INSULIN GLARGINE [Suspect]
     Active Substance: INSULIN GLARGINE
     Indication: TYPE 2 DIABETES MELLITUS
     Dosage: 48 IU, QD (0?0?0?48 U)
     Route: 058
     Dates: start: 2016, end: 201904
  2. INSULIN LISPRO [Suspect]
     Active Substance: INSULIN LISPRO
     Indication: TYPE 2 DIABETES MELLITUS
     Dosage: UNK UNK, TID (26?28?22 IU/DAILY)
     Route: 058
     Dates: start: 2018, end: 201907
  3. METFORMIN HYDROCHLORIDE. [Suspect]
     Active Substance: METFORMIN HYDROCHLORIDE
     Indication: TYPE 2 DIABETES MELLITUS
     Dosage: 2000 MG, QD
     Route: 048
     Dates: start: 2016, end: 2018

REACTIONS (3)
  - Diabetic metabolic decompensation [Recovered/Resolved]
  - Injection site pain [Recovered/Resolved]
  - Weight increased [Recovered/Resolved]
